FAERS Safety Report 24809665 (Version 1)
Quarter: 2025Q1

REPORT INFORMATION
  Report Type: Spontaneous
  Country: US (occurrence: US)
  Receive Date: 20250106
  Receipt Date: 20250106
  Transmission Date: 20250408
  Serious: No
  Sender: EISAI
  Company Number: US-Eisai-EC-2023-138219

PATIENT
  Age: 26 Year
  Sex: Male

DRUGS (1)
  1. BANZEL [Suspect]
     Active Substance: RUFINAMIDE
     Indication: Lennox-Gastaut syndrome
     Route: 048
     Dates: end: 2024

REACTIONS (1)
  - Drug withdrawal convulsions [Unknown]

NARRATIVE: CASE EVENT DATE: 20240101
